FAERS Safety Report 15414251 (Version 1)
Quarter: 2018Q3

REPORT INFORMATION
  Report Type: Spontaneous
  Country: GB (occurrence: GB)
  Receive Date: 20180921
  Receipt Date: 20180921
  Transmission Date: 20181010
  Serious: Yes (Other)
  Sender: FDA-Public Use
  Company Number: GB-009507513-2007-152711-NL

PATIENT
  Age: 31 Year
  Sex: Female
  Weight: 59 kg

DRUGS (4)
  1. CEPHALEXIN. [Concomitant]
     Active Substance: CEPHALEXIN
     Indication: URINARY TRACT INFECTION
     Dosage: 1500 MG, QD
     Route: 048
     Dates: start: 20060510, end: 20060517
  2. IMPLANON [Suspect]
     Active Substance: ETONOGESTREL
     Indication: CONTRACEPTION
     Dosage: 1 DF, UNK
     Route: 058
     Dates: start: 20060619
  3. MICROGYNON [Concomitant]
     Active Substance: ETHINYL ESTRADIOL\LEVONORGESTREL ACETATE
     Indication: CONTRACEPTION
     Dosage: UNK DF, UNK
     Dates: start: 20060421, end: 20060721
  4. PENICILLIN (UNSPECIFIED) [Concomitant]
     Active Substance: PENICILLIN
     Indication: TONSILLITIS
     Dosage: 1000 MG, QD
     Dates: start: 20060511, end: 20060518

REACTIONS (2)
  - Device ineffective [Unknown]
  - Pregnancy with implant contraceptive [Unknown]
